FAERS Safety Report 21516416 (Version 2)
Quarter: 2022Q4

REPORT INFORMATION
  Report Type: Spontaneous
  Country: DE (occurrence: DE)
  Receive Date: 20221027
  Receipt Date: 20221129
  Transmission Date: 20230113
  Serious: Yes (Death, Hospitalization, Other)
  Sender: FDA-Public Use
  Company Number: DE-NOVARTISPH-NVSC2022DE240103

PATIENT
  Age: 49 Year
  Sex: Female

DRUGS (4)
  1. GEMCITABINE [Suspect]
     Active Substance: GEMCITABINE
     Indication: Lung adenocarcinoma
     Dosage: UNK (2 CYCLES)
     Route: 065
     Dates: start: 202203
  2. CARBOPLATIN [Suspect]
     Active Substance: CARBOPLATIN
     Indication: Lung adenocarcinoma
     Dosage: UNK (2 CYCLES)
     Route: 065
     Dates: start: 202203
  3. TYSABRI [Suspect]
     Active Substance: NATALIZUMAB
     Indication: Relapsing-remitting multiple sclerosis
     Dosage: UNK
     Route: 042
     Dates: start: 201411, end: 2021
  4. TYSABRI [Suspect]
     Active Substance: NATALIZUMAB
     Indication: Relapsing-remitting multiple sclerosis
     Dosage: UNK
     Route: 058
     Dates: start: 202105, end: 202110

REACTIONS (4)
  - Adenosquamous cell lung cancer stage IV [Fatal]
  - Breast cancer female [Unknown]
  - Pancytopenia [Unknown]
  - Venous thrombosis limb [Unknown]

NARRATIVE: CASE EVENT DATE: 20211001
